FAERS Safety Report 10654360 (Version 1)
Quarter: 2014Q4

REPORT INFORMATION
  Report Type: Spontaneous
  Country: US (occurrence: None)
  Receive Date: 20141205
  Receipt Date: 20141205
  Transmission Date: 20150529
  Serious: Yes (Other)
  Sender: FDA-Public Use
  Company Number: USA-2014103003

PATIENT
  Age: 37 Year
  Sex: Male
  Weight: 63.5 kg

DRUGS (1)
  1. POMALYST [Suspect]
     Active Substance: POMALIDOMIDE
     Indication: PLASMA CELL MYELOMA
     Dosage: 04/09/2014 -TEMPORARILY INTERRUPTED
     Route: 048
     Dates: start: 20130409

REACTIONS (1)
  - White blood cell count decreased [None]
